FAERS Safety Report 22710796 (Version 3)
Quarter: 2023Q4

REPORT INFORMATION
  Report Type: Spontaneous
  Country: US (occurrence: US)
  Receive Date: 20230717
  Receipt Date: 20231018
  Transmission Date: 20240110
  Serious: No
  Sender: FDA-Public Use
  Company Number: US-SA-SAC20230717000178

PATIENT
  Sex: Female

DRUGS (1)
  1. DUPIXENT [Suspect]
     Active Substance: DUPILUMAB
     Indication: Eosinophilic oesophagitis
     Dosage: 300 MG, QW
     Route: 058

REACTIONS (7)
  - Swelling [Unknown]
  - Pharyngeal swelling [Unknown]
  - Feeling hot [Unknown]
  - Erythema [Unknown]
  - Injection site inflammation [Unknown]
  - Injection site erythema [Unknown]
  - Rash [Unknown]
